FAERS Safety Report 20987694 (Version 1)
Quarter: 2022Q2

REPORT INFORMATION
  Report Type: Spontaneous
  Country: US (occurrence: US)
  Receive Date: 20220621
  Receipt Date: 20220621
  Transmission Date: 20220721
  Serious: No
  Sender: FDA-Public Use
  Company Number: US-PFIZER INC-202200853007

PATIENT
  Age: 61 Year
  Sex: Female

DRUGS (2)
  1. PAXLOVID [Suspect]
     Active Substance: NIRMATRELVIR\RITONAVIR
     Indication: COVID-19 treatment
     Dosage: UNK
     Dates: start: 20220526, end: 20220531
  2. FISH OIL [Concomitant]
     Active Substance: FISH OIL
     Dosage: UNK
     Dates: start: 20200131

REACTIONS (3)
  - Disease recurrence [Recovering/Resolving]
  - COVID-19 [Recovering/Resolving]
  - Taste disorder [Unknown]

NARRATIVE: CASE EVENT DATE: 20220608
